FAERS Safety Report 10413994 (Version 1)
Quarter: 2014Q3

REPORT INFORMATION
  Report Type: Spontaneous
  Country: AU (occurrence: None)
  Receive Date: 20140825
  Receipt Date: 20140825
  Transmission Date: 20150326
  Serious: Yes (Other)
  Sender: FDA-Public Use
  Company Number: 2014-19986

PATIENT
  Age: 87 Year
  Sex: Male

DRUGS (1)
  1. EYLEA [Suspect]
     Active Substance: AFLIBERCEPT
     Indication: AGE-RELATED MACULAR DEGENERATION
     Dosage: 2 MG, IN LEFT EYE EVERY 4 WEEKS, IN THE RIGHT EYE EVERY 10 WEEKS/MORE FREQUENT TREATMENT
     Route: 031
     Dates: start: 20130123

REACTIONS (4)
  - No therapeutic response [None]
  - Maculopathy [None]
  - Inappropriate schedule of drug administration [None]
  - Eye disorder [None]

NARRATIVE: CASE EVENT DATE: 201405
